FAERS Safety Report 6280417-3 (Version None)
Quarter: 2009Q3

REPORT INFORMATION
  Report Type: 
  Country: None (occurrence: None)
  Receive Date: 20090724
  Receipt Date: 20090720
  Transmission Date: 20100115
  Serious: Yes (Hospitalization)
  Sender: FDA-Public Use
  Company Number: US-TEVA-202770USA

PATIENT
  Age: 13 Year
  Sex: Female

DRUGS (1)
  1. PROPOFOL [Suspect]
     Indication: ELECTRIC SHOCK
     Dosage: 100 MG/HR
     Route: 042

REACTIONS (1)
  - HEPATIC STEATOSIS [None]
